FAERS Safety Report 6470526-8 (Version None)
Quarter: 2009Q4

REPORT INFORMATION
  Report Type: 
  Country: None (occurrence: None)
  Receive Date: 20091203
  Receipt Date: 20091126
  Transmission Date: 20100525
  Serious: Yes (Other)
  Sender: FDA-Public Use
  Company Number: JP-BAXTER-2009BH016788

PATIENT
  Age: 81 Year
  Sex: Male
  Weight: 43 kg

DRUGS (3)
  1. SORBITOL 3% IN PLASTIC CONTAINER [Suspect]
     Indication: BLADDER IRRIGATION
     Route: 066
     Dates: start: 20090430, end: 20090430
  2. DIAZEPAM [Concomitant]
     Indication: LOCAL ANAESTHESIA
     Route: 048
  3. BUPIVACAINE [Concomitant]
     Indication: LOCAL ANAESTHESIA
     Route: 042

REACTIONS (1)
  - TRANSURETHRAL RESECTION SYNDROME [None]
